FAERS Safety Report 13630844 (Version 1)
Quarter: 2017Q2

REPORT INFORMATION
  Report Type: Spontaneous
  Country: US (occurrence: US)
  Receive Date: 20170531
  Receipt Date: 20170531
  Transmission Date: 20170830
  Serious: No
  Sender: FDA-Public Use
  Company Number: US-ASTELLAS-1333141

PATIENT
  Sex: Female

DRUGS (6)
  1. DILTIAZEM HCL [Concomitant]
     Active Substance: DILTIAZEM HYDROCHLORIDE
  2. LIDODERM [Concomitant]
     Active Substance: LIDOCAINE
  3. METAMUCIL [Concomitant]
     Active Substance: PLANTAGO SEED
  4. TARCEVA [Suspect]
     Active Substance: ERLOTINIB HYDROCHLORIDE
     Indication: LUNG NEOPLASM MALIGNANT
     Route: 048
     Dates: start: 20131231
  5. LANTUS [Concomitant]
     Active Substance: INSULIN GLARGINE
  6. CELEBREX [Concomitant]
     Active Substance: CELECOXIB

REACTIONS (2)
  - Fatigue [Unknown]
  - Rash [Unknown]
